FAERS Safety Report 6065556-4 (Version None)
Quarter: 2009Q1

REPORT INFORMATION
  Report Type: 
  Country: None (occurrence: None)
  Receive Date: 20090204
  Receipt Date: 20090202
  Transmission Date: 20090719
  Serious: Yes (Hospitalization, Other)
  Sender: FDA-Public Use
  Company Number: GB-ROXANE LABORATORIES, INC.-2009-RO-00099RO

PATIENT
  Age: 9 Year
  Sex: Male

DRUGS (5)
  1. LAMOTRIGINE [Suspect]
  2. CLOBAZAM [Suspect]
  3. ETHOSUXIMIDE [Suspect]
  4. VALPROATE SODIUM [Suspect]
  5. ANTIHISTAMINE [Concomitant]
     Indication: ANGIOEDEMA

REACTIONS (10)
  - ANGIOEDEMA [None]
  - BLISTER [None]
  - CONVULSION [None]
  - DEPRESSED LEVEL OF CONSCIOUSNESS [None]
  - DRUG INTERACTION [None]
  - DRUG TOXICITY [None]
  - FACE OEDEMA [None]
  - LOWER RESPIRATORY TRACT INFECTION [None]
  - OEDEMA PERIPHERAL [None]
  - SWEAT GLAND DISORDER [None]
